FAERS Safety Report 22171307 (Version 1)
Quarter: 2023Q2

REPORT INFORMATION
  Report Type: Spontaneous
  Country: US (occurrence: US)
  Receive Date: 20230404
  Receipt Date: 20230404
  Transmission Date: 20230722
  Serious: Yes (Other)
  Sender: FDA-Public Use
  Company Number: US-TORRENT-00012594

PATIENT
  Sex: Female
  Weight: 97 kg

DRUGS (1)
  1. ESCITALOPRAM OXALATE [Suspect]
     Active Substance: ESCITALOPRAM OXALATE
     Indication: Depression
     Dosage: 10 MG
     Route: 048
     Dates: start: 202303, end: 20230322

REACTIONS (7)
  - Emotional disorder [Unknown]
  - Mood altered [Unknown]
  - Anger [Unknown]
  - Feeling jittery [Unknown]
  - Autophobia [Unknown]
  - Suicidal ideation [Unknown]
  - Drug withdrawal syndrome [Unknown]

NARRATIVE: CASE EVENT DATE: 20230301
